FAERS Safety Report 11447186 (Version 1)
Quarter: 2015Q3

REPORT INFORMATION
  Report Type: Spontaneous
  Country: CH (occurrence: CH)
  Receive Date: 20150902
  Receipt Date: 20150902
  Transmission Date: 20151125
  Serious: Yes (Hospitalization)
  Sender: FDA-Public Use
  Company Number: PHHY2015CH104148

PATIENT
  Age: 50 Year
  Sex: Female

DRUGS (4)
  1. RIFATER [Interacting]
     Active Substance: ISONIAZID\PYRAZINAMIDE\RIFAMPIN
     Indication: PULMONARY TUBERCULOSIS
     Route: 048
     Dates: start: 201507, end: 20150808
  2. MYAMBUTOL [Suspect]
     Active Substance: ETHAMBUTOL HYDROCHLORIDE
     Indication: PULMONARY TUBERCULOSIS
     Dosage: 400 MG, BID
     Route: 048
     Dates: start: 201507, end: 20150808
  3. LEPONEX [Interacting]
     Active Substance: CLOZAPINE
     Indication: SCHIZOPHRENIA
     Dosage: 150 MG, QD 100 MG MORNING AND 50 MG EVENING
     Route: 048
  4. LEPONEX [Interacting]
     Active Substance: CLOZAPINE
     Dosage: UNK
     Route: 048

REACTIONS (5)
  - Hallucination, visual [Recovered/Resolved]
  - Vomiting [Recovered/Resolved]
  - Drug interaction [Recovered/Resolved]
  - Psychiatric decompensation [Recovered/Resolved]
  - Nausea [Recovered/Resolved]

NARRATIVE: CASE EVENT DATE: 201507
